FAERS Safety Report 18966664 (Version 1)
Quarter: 2021Q1

REPORT INFORMATION
  Report Type: Spontaneous
  Country: US (occurrence: US)
  Receive Date: 20210303
  Receipt Date: 20210303
  Transmission Date: 20210420
  Serious: No
  Sender: FDA-Public Use
  Company Number: US-ENDO PHARMACEUTICALS INC-2020-002161

PATIENT
  Sex: Male
  Weight: 92.97 kg

DRUGS (3)
  1. XIAFLEX [Suspect]
     Active Substance: COLLAGENASE CLOSTRIDIUM HISTOLYTICUM
     Dosage: UNK UNKNOWN, UNKNOWN, ONE INJECTION LEFT HAND LITTLE FINGER
     Route: 026
     Dates: start: 20181210
  2. XIAFLEX [Suspect]
     Active Substance: COLLAGENASE CLOSTRIDIUM HISTOLYTICUM
     Indication: DUPUYTREN^S CONTRACTURE
     Dosage: UNK UNKNOWN, UNKNOWN, ONE INJECTION RIGHT HAND LITTLE FINGER
     Route: 026
     Dates: start: 2016
  3. XIAFLEX [Suspect]
     Active Substance: COLLAGENASE CLOSTRIDIUM HISTOLYTICUM
     Dosage: UNK UNKNOWN, UNKNOWN, ONE INJECTION RIGHT HAND LITTLE FINGER
     Route: 026
     Dates: start: 20190307

REACTIONS (2)
  - Drug ineffective [Unknown]
  - Dupuytren^s contracture [Unknown]

NARRATIVE: CASE EVENT DATE: 2020
